FAERS Safety Report 5129929-6 (Version None)
Quarter: 2006Q4

REPORT INFORMATION
  Report Type: 
  Country: None (occurrence: None)
  Receive Date: 20061012
  Receipt Date: 20060504
  Transmission Date: 20070319
  Serious: Yes (Other)
  Sender: FDA-Public Use
  Company Number: HQWYE880111OCT06

PATIENT
  Age: 54 Year
  Sex: Female

DRUGS (9)
  1. TEMSIROLIMUS (TEMSIROLIMUS, TABLET) [Suspect]
     Indication: BREAST CANCER
     Dosage: 30 MG 1X PER 1 DAY ORAL
     Route: 048
     Dates: start: 20051027
  2. TEMSIROLIMUS (TEMSIROLIMUS, TABLET) [Suspect]
  3. LETROZOLE, CONTROL FOR TEMSIROLIMUS (LETROZOLE, CONTROL FOR TEMSIROLIM [Suspect]
     Indication: BREAST CANCER
     Dosage: 2.5 MG, ORAL
     Route: 048
     Dates: start: 20051027
  4. CLODRONATE DISODIUM (CLODRONATE DISODIUM) [Concomitant]
  5. KETONAL (KETOPROFEN) [Concomitant]
  6. THEOPHYLLINE [Concomitant]
  7. PREDNISOLONE [Concomitant]
  8. BECLOMETASONE (BECLOMETASONE), ^BECLAMETHAZON^ [Concomitant]
  9. BERODUAL (FENOTEROL HYDROBROMIDE/IPRATROPIUM BROMIDE) [Concomitant]

REACTIONS (1)
  - THROMBOCYTOPENIA [None]
